FAERS Safety Report 18223309 (Version 9)
Quarter: 2022Q3

REPORT INFORMATION
  Report Type: Spontaneous
  Country: IN (occurrence: IN)
  Receive Date: 20200902
  Receipt Date: 20220826
  Transmission Date: 20221027
  Serious: Yes (Hospitalization)
  Sender: FDA-Public Use
  Company Number: IN-PFIZER INC-2019119041

PATIENT
  Age: 78 Year
  Sex: Female

DRUGS (4)
  1. PALBOCICLIB [Suspect]
     Active Substance: PALBOCICLIB
     Indication: Breast cancer metastatic
     Dosage: 125 MG, 1X/DAY
     Route: 048
     Dates: start: 20190121
  2. PALBOCICLIB [Suspect]
     Active Substance: PALBOCICLIB
     Dosage: 75 MG, 1X/DAY FOR 21 DAYS IN A MONTH
  3. FEMARA [Concomitant]
     Active Substance: LETROZOLE
     Indication: Breast cancer metastatic
     Dosage: UNK
     Dates: start: 201901
  4. FEMARA [Concomitant]
     Active Substance: LETROZOLE
     Dosage: 1 DAILY

REACTIONS (8)
  - Cardiac disorder [Unknown]
  - Food poisoning [Unknown]
  - White blood cell count decreased [Unknown]
  - Blood thyroid stimulating hormone decreased [Unknown]
  - Urinary tract infection [Unknown]
  - Pyrexia [Unknown]
  - Drug level increased [Unknown]
  - Arthralgia [Unknown]

NARRATIVE: CASE EVENT DATE: 20190101
